FAERS Safety Report 7949820-7 (Version None)
Quarter: 2011Q4

REPORT INFORMATION
  Report Type: 
  Country: None (occurrence: None)
  Receive Date: 20111123
  Receipt Date: 20111110
  Transmission Date: 20120403
  Serious: Yes (Hospitalization, Other)
  Sender: FDA-Public Use
  Company Number: 2011MA016287

PATIENT
  Age: 77 Year
  Sex: Female
  Weight: 53.0709 kg

DRUGS (27)
  1. ENALAPRIL MALEATE [Concomitant]
  2. ZOFRAN [Concomitant]
  3. DIURETICS [Concomitant]
  4. SENOKOT [Concomitant]
  5. SPIRONOLACTONE [Concomitant]
  6. ANTIBIOTICS [Concomitant]
  7. LAXATIVES [Concomitant]
  8. LASIX [Concomitant]
  9. MOLRINONE [Concomitant]
  10. DOBUTAMINE HCL [Concomitant]
  11. BROMIDE [Concomitant]
  12. CEFPODOXIME PROXETIL [Concomitant]
  13. CEFTRIAXONE [Concomitant]
  14. LACTATE [Concomitant]
  15. PROTONIX [Concomitant]
  16. ACETAMINOPHEN [Concomitant]
  17. IV FLUIDS [Concomitant]
  18. ALBUTEROL [Concomitant]
  19. TORSEMIDE [Concomitant]
  20. VICODIN [Concomitant]
  21. NATRECOR [Concomitant]
  22. DIGOXIN [Suspect]
     Indication: CARDIAC DISORDER
     Dosage: 0.125 MG;QD;PO
     Route: 048
     Dates: start: 20080126, end: 20080216
  23. AMIODARONE HCL [Concomitant]
  24. ASPIRIN [Concomitant]
  25. ZITHROMAX [Concomitant]
  26. HEPARIN [Concomitant]
  27. COUMADIN [Concomitant]

REACTIONS (33)
  - ATRIAL FIBRILLATION [None]
  - NAUSEA [None]
  - AORTIC VALVE INCOMPETENCE [None]
  - MUSCULAR WEAKNESS [None]
  - PLEURAL EFFUSION [None]
  - CARDIOMEGALY [None]
  - DRUG INTERACTION [None]
  - AORTIC VALVE SCLEROSIS [None]
  - TRICUSPID VALVE INCOMPETENCE [None]
  - ABDOMINAL PAIN [None]
  - DEHYDRATION [None]
  - DILATATION VENTRICULAR [None]
  - PAIN [None]
  - ECONOMIC PROBLEM [None]
  - CARDIAC FAILURE CONGESTIVE [None]
  - APHASIA [None]
  - DYSPNOEA [None]
  - ACUTE RESPIRATORY FAILURE [None]
  - LEFT VENTRICULAR DYSFUNCTION [None]
  - EJECTION FRACTION DECREASED [None]
  - INJURY [None]
  - ANHEDONIA [None]
  - VENTRICULAR TACHYCARDIA [None]
  - TOXICITY TO VARIOUS AGENTS [None]
  - ANXIETY [None]
  - EMOTIONAL DISORDER [None]
  - HEMIPLEGIA [None]
  - PULMONARY HYPERTENSION [None]
  - PULMONARY OEDEMA [None]
  - RENAL IMPAIRMENT [None]
  - CONGESTIVE CARDIOMYOPATHY [None]
  - SYSTOLIC DYSFUNCTION [None]
  - MITRAL VALVE INCOMPETENCE [None]
